FAERS Safety Report 6214985-4 (Version None)
Quarter: 2009Q2

REPORT INFORMATION
  Report Type: 
  Country: None (occurrence: None)
  Receive Date: 20090604
  Receipt Date: 20080423
  Transmission Date: 20091009
  Serious: No
  Sender: FDA-Public Use
  Company Number: US-ASTRAZENECA-2008UW08246

PATIENT
  Age: 4 Year
  Sex: Male
  Weight: 19.5 kg

DRUGS (14)
  1. PRILOSEC [Suspect]
     Indication: GASTRIC DISORDER
     Dosage: 2 TABLETS ( 1 TABLET, 2 IN 1 DAY)
     Route: 048
     Dates: start: 20030101
  2. BIAXIN [Suspect]
     Indication: HELICOBACTER INFECTION
     Dosage: 250 MG/5ML - 4 ML (2 IN 1 DAY) PO DAILY
     Route: 048
     Dates: start: 20070703
  3. METRONIDAZOLE [Suspect]
     Indication: HELICOBACTER INFECTION
     Route: 048
     Dates: start: 20070703
  4. LEVOTHYROXINE [Concomitant]
     Indication: HYPOTHYROIDISM
     Route: 048
     Dates: start: 20030101
  5. CLONAZEPAM [Concomitant]
     Indication: CONVULSION
     Route: 048
     Dates: start: 20030101
  6. TOPIRAMATE [Concomitant]
     Indication: PROPHYLAXIS
     Route: 048
     Dates: start: 20030101
  7. TOPIRAMATE [Concomitant]
     Indication: CARDIAC DISORDER
     Route: 048
     Dates: start: 20030101
  8. PHENOBARBITAL TAB [Concomitant]
     Indication: CONVULSION
     Route: 048
     Dates: start: 20030101
  9. PREGABALIN [Concomitant]
     Indication: CONVULSION
     Route: 048
     Dates: start: 20060101
  10. GLYCOPYRRONIUM [Concomitant]
     Indication: ILL-DEFINED DISORDER
     Route: 048
     Dates: start: 20030101
  11. DESMOPRESSIN ACETATE [Concomitant]
     Indication: ILL-DEFINED DISORDER
     Route: 048
     Dates: start: 20030101
  12. URSODIOL [Concomitant]
     Indication: PROPHYLAXIS
     Route: 048
     Dates: start: 20050101
  13. URSODIOL [Concomitant]
     Indication: CHOLELITHIASIS
     Route: 048
     Dates: start: 20050101
  14. PREDNISOLONE [Concomitant]
     Indication: ADRENAL DISORDER
     Route: 048
     Dates: start: 20030101

REACTIONS (2)
  - DEPRESSED LEVEL OF CONSCIOUSNESS [None]
  - LETHARGY [None]
